FAERS Safety Report 5915295-2 (Version None)
Quarter: 2008Q4

REPORT INFORMATION
  Report Type: 
  Country: None (occurrence: None)
  Receive Date: 20081010
  Receipt Date: 20080922
  Transmission Date: 20090506
  Serious: Yes (Hospitalization)
  Sender: FDA-Public Use
  Company Number: ZA-BAYER-200826731GPV

PATIENT
  Age: 16 Year
  Sex: Male

DRUGS (3)
  1. CIPROBAY XR [Suspect]
     Indication: GASTROENTERITIS
     Route: 048
     Dates: start: 20080916, end: 20080916
  2. VALOID [Concomitant]
     Indication: DEHYDRATION
     Route: 042
     Dates: start: 20080915
  3. BUSCOPAN [Concomitant]
     Indication: DEHYDRATION
     Route: 042
     Dates: start: 20080915

REACTIONS (2)
  - HALLUCINATION, VISUAL [None]
  - SELF INJURIOUS BEHAVIOUR [None]
